FAERS Safety Report 15498064 (Version 1)
Quarter: 2018Q4

REPORT INFORMATION
  Report Type: Spontaneous
  Country: US (occurrence: US)
  Receive Date: 20181015
  Receipt Date: 20181015
  Transmission Date: 20190205
  Serious: No
  Sender: FDA-Public Use
  Company Number: US-CIPLA LTD.-2016US05786

PATIENT

DRUGS (2)
  1. QUINAPRIL. [Suspect]
     Active Substance: QUINAPRIL
     Dosage: UNK, (GREENSTONE)
     Route: 065
  2. QUINAPRIL. [Suspect]
     Active Substance: QUINAPRIL
     Dosage: UNK, DAILY, (UNKNOWN GENERIC MANUFACTURER)
     Route: 048

REACTIONS (2)
  - Malaise [Unknown]
  - Product substitution issue [Unknown]
